FAERS Safety Report 7490312-X (Version None)
Quarter: 2011Q2

REPORT INFORMATION
  Report Type: 
  Country: None (occurrence: None)
  Receive Date: 20110519
  Receipt Date: 20110302
  Transmission Date: 20111010
  Serious: Yes (Other)
  Sender: FDA-Public Use
  Company Number: US-BRISTOL-MYERS SQUIBB COMPANY-15583503

PATIENT
  Age: 60 Year
  Sex: Female
  Weight: 38 kg

DRUGS (1)
  1. BARACLUDE [Suspect]
     Dosage: RECEIVED FOR LESS THAN AN YEAR
     Dates: end: 20110201

REACTIONS (1)
  - DRUG INEFFECTIVE [None]
